FAERS Safety Report 7626939-1 (Version None)
Quarter: 2011Q3

REPORT INFORMATION
  Report Type: 
  Country: None (occurrence: None)
  Receive Date: 20110714
  Receipt Date: 20110707
  Transmission Date: 20111222
  Serious: Yes (Hospitalization)
  Sender: FDA-Public Use
  Company Number: 2011SP002195

PATIENT
  Age: 11 Year
  Sex: Male

DRUGS (13)
  1. CLONAZEPAM [Concomitant]
  2. HYDROCORTISONE [Concomitant]
  3. XOPENEX HFA [Suspect]
     Indication: LUNG DISORDER
     Dosage: ; Q6H; INHALATION
     Route: 055
  4. AZITHROMYCIN [Suspect]
     Indication: PROPHYLAXIS
     Dosage: 200 MG; QOD; ORAL
     Route: 048
  5. SENNA /00142201/ [Concomitant]
  6. VALPROIC ACID [Suspect]
     Dosage: 650 MG; TID; ORAL
     Route: 048
  7. CELECOXIB [Concomitant]
  8. FOLIC ACID [Concomitant]
  9. MONTELUKAST SODIUM [Concomitant]
  10. PEPTAMEN [Concomitant]
  11. TIZANIDINE HCL [Concomitant]
  12. ONDANSETRON [Concomitant]
  13. LANSOPRAZOLE [Concomitant]

REACTIONS (6)
  - OXYGEN SATURATION DECREASED [None]
  - INTERNATIONAL NORMALISED RATIO INCREASED [None]
  - HYPOPROTHROMBINAEMIA [None]
  - PANCREATITIS [None]
  - CHOLELITHIASIS [None]
  - RESTLESSNESS [None]
